FAERS Safety Report 5032813-X (Version None)
Quarter: 2006Q2

REPORT INFORMATION
  Report Type: 
  Country: None (occurrence: None)
  Receive Date: 20060515
  Receipt Date: 20060306
  Transmission Date: 20061013
  Serious: No
  Sender: FDA-Public Use
  Company Number: S06-USA-00759-01

PATIENT
  Age: 92 Year
  Sex: Female

DRUGS (2)
  1. NAMENDA [Suspect]
     Dosage: 5 MG QD PO
     Route: 048
     Dates: start: 20060303
  2. TENORETIC 100 [Concomitant]

REACTIONS (2)
  - ABNORMAL DREAMS [None]
  - DIZZINESS [None]
